FAERS Safety Report 8814592 (Version 1)
Quarter: 2012Q4

REPORT INFORMATION
  Report Type: Spontaneous
  Country: US (occurrence: None)
  Receive Date: 20120926
  Receipt Date: 20120926
  Transmission Date: 20130627
  Serious: Yes (Hospitalization, Other)
  Sender: FDA-Public Use
  Company Number: NSR_00665_2012

PATIENT
  Age: 23 Year
  Sex: Male

DRUGS (6)
  1. CLONIDINE [Suspect]
     Indication: PRODUCT USED FOR UNKNOWN INDICATION
     Dosage: DF
     Route: 062
  2. KETAMINE [Concomitant]
  3. GABAPENTIN [Concomitant]
  4. IMIPRAMINE [Concomitant]
  5. LIDOCAINE [Concomitant]
  6. MEFENAMIC ACID [Concomitant]

REACTIONS (7)
  - Mental status changes [None]
  - Sinus bradycardia [None]
  - Hypotension [None]
  - Pain [None]
  - Mydriasis [None]
  - Rash [None]
  - Toxicity to various agents [None]
